FAERS Safety Report 7320681-2 (Version None)
Quarter: 2011Q1

REPORT INFORMATION
  Report Type: 
  Country: None (occurrence: None)
  Receive Date: 20110216
  Receipt Date: 20110126
  Transmission Date: 20110831
  Serious: No
  Sender: FDA-Public Use
  Company Number: 2011-00041

PATIENT
  Age: 86 Year
  Sex: Male
  Weight: 88.4514 kg

DRUGS (4)
  1. CARDOVAL [Concomitant]
  2. COUMADIN [Concomitant]
  3. ZICAM COLD REMEDY ORAL MIST [Suspect]
     Dosage: Q 3 HOURS
  4. PROTONIX [Concomitant]

REACTIONS (1)
  - AGEUSIA [None]
